FAERS Safety Report 21956665 (Version 1)
Quarter: 2023Q1

REPORT INFORMATION
  Report Type: Spontaneous
  Country: BR (occurrence: BR)
  Receive Date: 20230206
  Receipt Date: 20230206
  Transmission Date: 20230417
  Serious: Yes (Hospitalization, Other)
  Sender: FDA-Public Use
  Company Number: BR-MYLANLABS-2023M1012610

PATIENT
  Sex: Female
  Weight: 67 kg

DRUGS (7)
  1. ALPRAZOLAM [Suspect]
     Active Substance: ALPRAZOLAM
     Indication: Anxiety
     Dosage: 1 MILLIGRAM, HS
     Route: 048
     Dates: end: 202204
  2. ALPRAZOLAM [Suspect]
     Active Substance: ALPRAZOLAM
     Dosage: 0.5 MILLIGRAM, QD
     Route: 048
     Dates: end: 202204
  3. ALPRAZOLAM [Suspect]
     Active Substance: ALPRAZOLAM
     Indication: Anxiety
     Dosage: 2 MILLIGRAM, PM (START DATE: APR-2022)
     Route: 065
  4. INDAPAMIDE [Concomitant]
     Active Substance: INDAPAMIDE
     Indication: Hypertension
     Dosage: UNK (START DATE APPROXIMATELY 2021)
     Route: 065
  5. PRESS PLUS [Concomitant]
     Indication: Hypertension
     Dosage: UNK(START DATE APPROXIMATELY 2021)
     Route: 065
  6. PANTOPRAZOLE MAGNESIUM [Concomitant]
     Active Substance: PANTOPRAZOLE MAGNESIUM
     Indication: Ulcer
     Dosage: UNK
     Route: 065
  7. PANTOPRAZOLE MAGNESIUM [Concomitant]
     Active Substance: PANTOPRAZOLE MAGNESIUM
     Indication: Gastritis

REACTIONS (10)
  - Thrombosis [Unknown]
  - Angina pectoris [Not Recovered/Not Resolved]
  - Myocardial ischaemia [Not Recovered/Not Resolved]
  - Infarction [Unknown]
  - Carotid arteriosclerosis [Not Recovered/Not Resolved]
  - Hypertension [Unknown]
  - Blood cholesterol abnormal [Not Recovered/Not Resolved]
  - Incorrect product administration duration [Recovered/Resolved]
  - Product availability issue [Not Recovered/Not Resolved]
  - Drug ineffective [Unknown]

NARRATIVE: CASE EVENT DATE: 20130101
